FAERS Safety Report 7290932-1 (Version None)
Quarter: 2011Q1

REPORT INFORMATION
  Report Type: 
  Country: None (occurrence: None)
  Receive Date: 20110214
  Receipt Date: 20110208
  Transmission Date: 20110831
  Serious: Yes (Hospitalization)
  Sender: FDA-Public Use
  Company Number: FR-ABBOTT-11P-056-0703993-00

PATIENT
  Age: 52 Year
  Sex: Female

DRUGS (4)
  1. SEROPRAM [Suspect]
     Indication: DEPRESSION
     Route: 048
     Dates: start: 20090101
  2. DEPAKOTE [Suspect]
     Indication: DEPRESSION
     Route: 048
     Dates: start: 20090101, end: 20110111
  3. DEPAKOTE [Suspect]
     Dates: start: 20110111
  4. SERESTA [Suspect]
     Indication: DEPRESSION
     Route: 048
     Dates: start: 20090101

REACTIONS (1)
  - EXTRAPYRAMIDAL DISORDER [None]
